FAERS Safety Report 15640002 (Version 3)
Quarter: 2018Q4

REPORT INFORMATION
  Report Type: Report from Study
  Country: US (occurrence: US)
  Receive Date: 20181120
  Receipt Date: 20181130
  Transmission Date: 20190205
  Serious: Yes (Hospitalization)
  Sender: FDA-Public Use
  Company Number: US-TAIHO ONCOLOGY  INC-EU-2018-02075

PATIENT
  Sex: Male
  Weight: 59.93 kg

DRUGS (4)
  1. ZOCOR [Concomitant]
     Active Substance: SIMVASTATIN
  2. PROTONIX [Concomitant]
     Active Substance: PANTOPRAZOLE SODIUM
  3. GLIPIZIDE. [Concomitant]
     Active Substance: GLIPIZIDE
  4. LONSURF [Suspect]
     Active Substance: TIPIRACIL HYDROCHLORIDE\TRIFLURIDINE
     Indication: COLON CANCER
     Dosage: CYCLE 1 ENDED ON 19/OCT/2018. CYCLE 2 STARTED 06/NOV/2018.
     Route: 048
     Dates: start: 20181008

REACTIONS (3)
  - Pulmonary thrombosis [Unknown]
  - Abdominal pain [Not Recovered/Not Resolved]
  - Headache [Not Recovered/Not Resolved]

NARRATIVE: CASE EVENT DATE: 2018
